FAERS Safety Report 14324645 (Version 4)
Quarter: 2018Q1

REPORT INFORMATION
  Report Type: Report from Study
  Country: BR (occurrence: BR)
  Receive Date: 20171226
  Receipt Date: 20180302
  Transmission Date: 20180509
  Serious: Yes (Hospitalization, Other)
  Sender: FDA-Public Use
  Company Number: BR-UCBSA-2017038021

PATIENT
  Age: 27 Year
  Sex: Male
  Weight: 58 kg

DRUGS (15)
  1. AZATHIOPRINE. [Concomitant]
     Active Substance: AZATHIOPRINE
     Indication: CROHN^S DISEASE
     Dosage: UNK (2 TABLETS/DAY)
     Route: 048
     Dates: start: 20170612
  2. AMLODIPINE [Concomitant]
     Active Substance: AMLODIPINE BESYLATE
     Indication: HYPERTENSION
     Dosage: 10 MG, 2X/DAY (BID)
     Route: 048
     Dates: start: 20170612
  3. PREDNISONE. [Concomitant]
     Active Substance: PREDNISONE
     Indication: CROHN^S DISEASE
     Dosage: 5 MG, UNK (1 TABLET)
     Route: 048
     Dates: start: 20170918
  4. FLUOROMETHOLONE. [Concomitant]
     Active Substance: FLUOROMETHOLONE
     Indication: DIZZINESS
     Dosage: UNK
     Route: 047
     Dates: start: 20170914
  5. AMYTRIL [Concomitant]
     Active Substance: AMITRIPTYLINE HYDROCHLORIDE
     Indication: DEPRESSION
     Dosage: UNK (5 TABLETS)
     Route: 048
     Dates: start: 20170808
  6. ISONIAZIDE [Concomitant]
     Active Substance: ISONIAZID
     Indication: PULMONARY MASS
  7. DIPYRONE [Concomitant]
     Active Substance: DIPYRONE
     Indication: ARTHRALGIA
  8. FLUOXETIN [Concomitant]
     Active Substance: FLUOXETINE HYDROCHLORIDE
     Indication: DEPRESSION
  9. DIAZEPAM. [Concomitant]
     Active Substance: DIAZEPAM
     Indication: DEPRESSION
     Dosage: 25 MG, ONCE DAILY (QD)
     Route: 048
     Dates: start: 20170711
  10. OMEPRAZOLE. [Concomitant]
     Active Substance: OMEPRAZOLE
     Indication: ABDOMINAL DISTENSION
  11. CERTOLIZUMAB PEGOL [Suspect]
     Active Substance: CERTOLIZUMAB PEGOL
     Indication: CROHN^S DISEASE
     Dosage: 400 MG, EV 2 WEEKS(QOW)
     Dates: start: 20170725, end: 201709
  12. ENALAPRIL [Concomitant]
     Active Substance: ENALAPRIL
     Indication: HYPERTENSION
     Dosage: 10 MG, UNK (1 TABLET)
     Route: 048
     Dates: start: 20170612
  13. LEVOZINE [Concomitant]
     Indication: DEPRESSION
  14. FLUCONAZOLE. [Concomitant]
     Active Substance: FLUCONAZOLE
     Indication: INFLAMMATION
     Dosage: 150 MG, ONCE DAILY (QD)
     Route: 048
     Dates: start: 20170707, end: 20170729
  15. LEVOXIN [Concomitant]
     Active Substance: LEVOFLOXACIN
     Indication: DEPRESSION
     Dosage: UNK
     Dates: start: 20170927, end: 20171102

REACTIONS (18)
  - Abdominal pain [Unknown]
  - Abdominal distension [Recovered/Resolved]
  - Oropharyngeal pain [Recovered/Resolved]
  - Pulmonary mass [Not Recovered/Not Resolved]
  - Dry throat [Recovered/Resolved]
  - Haemoptysis [Recovered/Resolved]
  - Chronic gastritis [Not Recovered/Not Resolved]
  - Gastrointestinal inflammation [Not Recovered/Not Resolved]
  - Throat irritation [Recovered/Resolved]
  - Diarrhoea [Recovered/Resolved]
  - Dyspnoea [Recovered/Resolved]
  - Dry mouth [Recovered/Resolved]
  - Arthralgia [Recovered/Resolved]
  - Eating disorder [Unknown]
  - Alopecia [Not Recovered/Not Resolved]
  - Suicidal ideation [Unknown]
  - Tuberculosis [Unknown]
  - Dyspepsia [Recovering/Resolving]

NARRATIVE: CASE EVENT DATE: 201708
